FAERS Safety Report 18622516 (Version 1)
Quarter: 2020Q4

REPORT INFORMATION
  Report Type: Spontaneous
  Country: CN (occurrence: CN)
  Receive Date: 20201216
  Receipt Date: 20201216
  Transmission Date: 20210114
  Serious: Yes (Other)
  Sender: FDA-Public Use
  Company Number: CN-PFIZER INC-2020492549

PATIENT
  Age: 78 Year
  Sex: Male
  Weight: 57 kg

DRUGS (1)
  1. SOLU-MEDROL [Suspect]
     Active Substance: METHYLPREDNISOLONE SODIUM SUCCINATE
     Indication: DERMATITIS EXFOLIATIVE GENERALISED
     Dosage: 40.000 MG, 1X/DAY
     Route: 041
     Dates: start: 20201124, end: 20201128

REACTIONS (6)
  - Mental disorder [Recovering/Resolving]
  - Hallucination [Recovering/Resolving]
  - Intentional self-injury [Recovering/Resolving]
  - Disorganised speech [Recovering/Resolving]
  - Nervous system disorder [Recovering/Resolving]
  - Abnormal behaviour [Recovering/Resolving]

NARRATIVE: CASE EVENT DATE: 20201124
